FAERS Safety Report 20975750 (Version 2)
Quarter: 2023Q1

REPORT INFORMATION
  Report Type: Spontaneous
  Country: CA (occurrence: CA)
  Receive Date: 20220617
  Receipt Date: 20230105
  Transmission Date: 20230418
  Serious: Yes (Other)
  Sender: FDA-Public Use
  Company Number: CA-SAMSUNG BIOEPIS-SB-2022-14567

PATIENT
  Age: 43 Year
  Sex: Male
  Weight: 95 kg

DRUGS (1)
  1. INFLIXIMAB [Suspect]
     Active Substance: INFLIXIMAB
     Indication: Crohn^s disease
     Route: 042

REACTIONS (8)
  - Anal fissure [Not Recovered/Not Resolved]
  - Arthralgia [Not Recovered/Not Resolved]
  - Condition aggravated [Not Recovered/Not Resolved]
  - Abdominal pain [Not Recovered/Not Resolved]
  - Hernia [Not Recovered/Not Resolved]
  - Ileal stenosis [Not Recovered/Not Resolved]
  - Obstruction [Not Recovered/Not Resolved]
  - Drug level below therapeutic [Not Recovered/Not Resolved]
